FAERS Safety Report 16652788 (Version 1)
Quarter: 2019Q3

REPORT INFORMATION
  Report Type: Report from Study
  Country: None (occurrence: ES)
  Receive Date: 20190731
  Receipt Date: 20190731
  Transmission Date: 20191004
  Serious: Yes (Hospitalization)
  Sender: FDA-Public Use
  Company Number: ES-ABBVIE-19K-144-2873655-00

PATIENT
  Age: 44 Year
  Sex: Female

DRUGS (1)
  1. HUMIRA [Suspect]
     Active Substance: ADALIMUMAB
     Indication: UVEITIS
     Dosage: 40 MG/ 2 WEEKS
     Route: 058
     Dates: start: 20150224

REACTIONS (1)
  - Uterine leiomyoma [Recovered/Resolved with Sequelae]

NARRATIVE: CASE EVENT DATE: 20160627
